FAERS Safety Report 16558592 (Version 1)
Quarter: 2019Q3

REPORT INFORMATION
  Report Type: Spontaneous
  Country: US (occurrence: US)
  Receive Date: 20190711
  Receipt Date: 20190711
  Transmission Date: 20191004
  Serious: Yes (Hospitalization, Other)
  Sender: FDA-Public Use
  Company Number: US-JNJFOC-20190638635

PATIENT
  Age: 64 Year
  Sex: Male

DRUGS (1)
  1. INVOKANA [Suspect]
     Active Substance: CANAGLIFLOZIN
     Indication: PRODUCT USED FOR UNKNOWN INDICATION
     Dosage: VARYING DOSES OF 100 AND 300 MG
     Route: 048

REACTIONS (4)
  - Cellulitis [Recovering/Resolving]
  - Osteomyelitis [Unknown]
  - Gangrene [Recovering/Resolving]
  - Limb amputation [Unknown]

NARRATIVE: CASE EVENT DATE: 20151203
